FAERS Safety Report 7418143-7 (Version None)
Quarter: 2011Q2

REPORT INFORMATION
  Report Type: 
  Country: None (occurrence: None)
  Receive Date: 20110415
  Receipt Date: 20110404
  Transmission Date: 20111010
  Serious: Yes (Hospitalization)
  Sender: FDA-Public Use
  Company Number: GB-BAYER-201041862GPV

PATIENT
  Age: 40 Year
  Sex: Male
  Weight: 65 kg

DRUGS (31)
  1. SORAFENIB [Suspect]
     Dosage: CYCLE 1, DAY 22
     Dates: start: 20100223, end: 20100311
  2. PARACETAMOL [Concomitant]
     Indication: PAIN IN EXTREMITY
     Dosage: DAILY DOSE 1 G
     Dates: start: 20100503, end: 20100503
  3. CYCLIZINE [Concomitant]
     Indication: NAUSEA
     Dosage: DAILY DOSE 150 MG
     Dates: start: 20091201, end: 20100201
  4. PANCREATIN [Concomitant]
     Indication: PROPHYLAXIS
     Dosage: 1 DF, PRN
     Dates: start: 20091201, end: 20100316
  5. SORAFENIB [Suspect]
     Dosage: CYCLE 3, DAY 22
     Dates: start: 20100527, end: 20100531
  6. SORAFENIB [Suspect]
     Dosage: CYCLE 6, DAY 1
     Dates: start: 20100831, end: 20100920
  7. PLACEBO (12917) [Suspect]
     Dosage: CYCLE 6, DAY 1
     Dates: start: 20100831, end: 20100925
  8. PARACETAMOL [Concomitant]
     Indication: ABDOMINAL DISCOMFORT
     Dosage: DAILY DOSE 1500 MG
     Dates: start: 20091201, end: 20100406
  9. NOZINAN [Concomitant]
     Indication: NAUSEA
     Dosage: DAILY DOSE 12.5 MG
     Dates: start: 20100126, end: 20100127
  10. NIOPAM [Concomitant]
     Dosage: DAILY DOSE 100 MG
     Dates: start: 20100126
  11. SORAFENIB [Suspect]
     Dosage: CYCLE 2, DAY 1
     Dates: start: 20100316, end: 20100402
  12. SORAFENIB [Suspect]
     Dosage: CYCLE 4, DAY 1
     Dates: start: 20100601, end: 20100621
  13. SORAFENIB [Suspect]
     Dosage: CYCLE 5, DAY 1
     Dates: start: 20100713, end: 20100809
  14. PLACEBO (12917) [Suspect]
     Dosage: CYCLE 1, DAY 1
     Dates: start: 20100202, end: 20100222
  15. CYCLIZINE [Concomitant]
     Dosage: DAILY DOSE 150 MG
     Dates: start: 20100223
  16. SORAFENIB [Suspect]
     Indication: HEPATIC NEOPLASM MALIGNANT
     Dosage: CYCLE 1, DAY 1
     Dates: start: 20100202, end: 20100222
  17. SORAFENIB [Suspect]
     Dosage: CYCLE 4, DAY 22
     Dates: start: 20100622, end: 20100712
  18. PLACEBO (12917) [Suspect]
     Dosage: CYCLE 2, DAY 1
     Dates: start: 20100316, end: 20100402
  19. PLACEBO (12917) [Suspect]
     Dosage: CYCLE 4, DAY 22
     Dates: start: 20100622, end: 20100712
  20. SORAFENIB [Suspect]
     Dosage: CYCLE 2, DAY 1
     Dates: start: 20100404, end: 20100405
  21. PLACEBO (12917) [Suspect]
     Dosage: CYCLE 1, DAY 22
     Dates: start: 20100223, end: 20100311
  22. PLACEBO (12917) [Suspect]
     Dosage: CYCLE 5, DAY 1
     Dates: start: 20100713, end: 20100809
  23. DICLOFENAC [Concomitant]
     Indication: ABDOMINAL DISCOMFORT
     Dosage: DAILY DOSE 150 MG
     Dates: start: 20091201
  24. SORAFENIB [Suspect]
     Dosage: CYCLE 6, DAY 22
     Dates: start: 20100921, end: 20100925
  25. SORAFENIB [Suspect]
     Dosage: CYCLE 2, DAY 22
     Dates: start: 20100406, end: 20100517
  26. PLACEBO (12917) [Suspect]
     Dosage: CYCLE 2, DAY 1
     Dates: start: 20100404, end: 20100405
  27. PLACEBO (12917) [Suspect]
     Dosage: CYCLE 2, DAY 22
     Dates: start: 20100406, end: 20100517
  28. PLACEBO (12917) [Suspect]
     Dosage: CYCLE 4, DAY 1
     Dates: start: 20100601, end: 20100621
  29. FERROUS SULFATE [Concomitant]
     Indication: ANAEMIA
     Dosage: DAILY DOSE 600 MG
     Dates: start: 20091201
  30. CYCLIZINE [Concomitant]
     Dosage: DAILY DOSE 100 MG
     Dates: start: 20100202, end: 20100222
  31. GASTROGRAFIN [Concomitant]
     Dosage: DAILY DOSE 20 ML
     Dates: start: 20100126

REACTIONS (4)
  - NAUSEA [None]
  - TACHYCARDIA [None]
  - AGITATION [None]
  - ABDOMINAL PAIN [None]
